FAERS Safety Report 12525761 (Version 1)
Quarter: 2016Q3

REPORT INFORMATION
  Report Type: Spontaneous
  Country: CA (occurrence: CA)
  Receive Date: 20160705
  Receipt Date: 20160705
  Transmission Date: 20161109
  Serious: Yes (Other)
  Sender: FDA-Public Use
  Company Number: CA-009507513-1510CAN011304

PATIENT
  Sex: Female

DRUGS (2)
  1. TEMODAL [Suspect]
     Active Substance: TEMOZOLOMIDE
     Indication: GLIOMA
     Dosage: 185 MG,OD X 21 DS
     Route: 048
     Dates: start: 201504
  2. TEMODAL [Suspect]
     Active Substance: TEMOZOLOMIDE
     Dosage: 185 MG, UNK
     Route: 048
     Dates: start: 20160518, end: 20160522

REACTIONS (2)
  - Brain neoplasm [Unknown]
  - Memory impairment [Unknown]

NARRATIVE: CASE EVENT DATE: 2015
